FAERS Safety Report 10142236 (Version 1)
Quarter: 2014Q2

REPORT INFORMATION
  Report Type: Spontaneous
  Country: ES (occurrence: ES)
  Receive Date: 20140429
  Receipt Date: 20140429
  Transmission Date: 20141212
  Serious: Yes (Hospitalization, Other)
  Sender: FDA-Public Use
  Company Number: ES-GILEAD-2014-0100732

PATIENT
  Age: 48 Year
  Sex: Male

DRUGS (2)
  1. TRUVADA [Suspect]
     Indication: HIV INFECTION
     Dosage: UNK DF, UNK
     Route: 048
     Dates: start: 201402
  2. RALTEGRAVIR [Suspect]
     Indication: HIV INFECTION
     Dosage: 400 MG, BID
     Route: 048
     Dates: start: 201402

REACTIONS (2)
  - Condition aggravated [Recovered/Resolved with Sequelae]
  - Immune reconstitution inflammatory syndrome associated Kaposi^s sarcoma [Recovered/Resolved with Sequelae]
